FAERS Safety Report 5315145-1 (Version None)
Quarter: 2007Q2

REPORT INFORMATION
  Report Type: 
  Country: None (occurrence: None)
  Receive Date: 20070502
  Receipt Date: 20070420
  Transmission Date: 20071010
  Serious: Yes (Other)
  Sender: FDA-Public Use
  Company Number: US-PFIZER INC-2007008010

PATIENT
  Age: 65 Year
  Sex: Female

DRUGS (10)
  1. LYRICA [Suspect]
     Indication: NEUROPATHY
     Dates: start: 20060824, end: 20060924
  2. LYRICA [Suspect]
     Indication: LUMBAR RADICULOPATHY
  3. LASIX [Concomitant]
  4. POTASSIUM CHLORIDE [Concomitant]
  5. LODINE [Concomitant]
  6. NORVASC [Concomitant]
  7. LIPITOR [Concomitant]
  8. HYDROCHLOROTHIAZIDE [Concomitant]
  9. LEXAPRO [Concomitant]
  10. SYNTHROID [Concomitant]

REACTIONS (1)
  - DEMENTIA [None]
